FAERS Safety Report 4769872-5 (Version None)
Quarter: 2005Q3

REPORT INFORMATION
  Report Type: 
  Country: None (occurrence: None)
  Receive Date: 20050908
  Receipt Date: 20050513
  Transmission Date: 20060218
  Serious: Yes (Other)
  Sender: FDA-Public Use
  Company Number: A03200501445

PATIENT
  Age: 69 Year
  Sex: Female

DRUGS (5)
  1. ELOXATIN [Suspect]
     Indication: COLORECTAL CANCER
     Dosage: 85 MG OTHER - INTRAVENOUS NOS
     Route: 042
     Dates: start: 20050509, end: 20050509
  2. FLUOROURACIL [Concomitant]
  3. LEUCOVORIN [Concomitant]
  4. ESTROGENS CONJUGATED [Concomitant]
  5. METOPROLOL SUCCINATE [Concomitant]

REACTIONS (1)
  - OPTIC NEURITIS [None]
